FAERS Safety Report 14962546 (Version 1)
Quarter: 2018Q2

REPORT INFORMATION
  Report Type: Spontaneous
  Country: US (occurrence: US)
  Receive Date: 20180601
  Receipt Date: 20180601
  Transmission Date: 20180711
  Serious: No
  Sender: FDA-Public Use
  Company Number: US-PFIZER INC-2018223869

PATIENT
  Age: 56 Year
  Sex: Male
  Weight: 72.56 kg

DRUGS (1)
  1. GABAPENTIN. [Suspect]
     Active Substance: GABAPENTIN
     Dosage: 3600 MG, DAILY (800MG TABLET, 4 TIMES DAILY: 1 TABLET 3 TIMES A DAY AND 1.5 TABLETS AT NIGHT)

REACTIONS (2)
  - Weight increased [Unknown]
  - Product use in unapproved indication [Unknown]
